FAERS Safety Report 20834880 (Version 1)
Quarter: 2022Q2

REPORT INFORMATION
  Report Type: Spontaneous
  Country: GB (occurrence: GB)
  Receive Date: 20220516
  Receipt Date: 20220516
  Transmission Date: 20220721
  Serious: Yes (Disabling)
  Sender: FDA-Public Use
  Company Number: None

PATIENT
  Age: 75 Year
  Sex: Male
  Weight: 59 kg

DRUGS (5)
  1. ATORVASTATIN [Suspect]
     Active Substance: ATORVASTATIN
     Indication: Ill-defined disorder
     Dosage: UNK
     Dates: start: 20220509
  2. BECLOMETHASONE DIPROPIONATE [Concomitant]
     Active Substance: BECLOMETHASONE DIPROPIONATE
     Indication: Ill-defined disorder
     Dosage: UNK UNK, BID, INHALE 2 DOSES TWICE DAILY
     Dates: start: 20210708
  3. EPROSARTAN [Concomitant]
     Active Substance: EPROSARTAN
     Indication: Ill-defined disorder
     Dosage: UNK UNK, QD, ONE TO BE TAKEN EACH DAY
     Dates: start: 20210708
  4. ROSUVASTATIN [Concomitant]
     Active Substance: ROSUVASTATIN
     Indication: Ill-defined disorder
     Dosage: 1 DOSAGE FORM, TAKE ONE TABLET TWICE WEEKLY
     Dates: start: 20220321, end: 20220509
  5. SILDENAFIL [Concomitant]
     Active Substance: SILDENAFIL
     Indication: Ill-defined disorder
     Dosage: UNK UNK, PRN, TAKE HALF A TABLET ONCE WEEKLY WHEN REQUIRED
     Dates: start: 20210708

REACTIONS (2)
  - Depressed mood [Recovering/Resolving]
  - Pain [Recovering/Resolving]

NARRATIVE: CASE EVENT DATE: 20220509
